FAERS Safety Report 17072385 (Version 1)
Quarter: 2019Q4

REPORT INFORMATION
  Report Type: Spontaneous
  Country: US (occurrence: US)
  Receive Date: 20191125
  Receipt Date: 20191125
  Transmission Date: 20200122
  Serious: Yes (Other)
  Sender: FDA-Public Use
  Company Number: US-JNJFOC-20191123822

PATIENT
  Age: 43 Year
  Sex: Male

DRUGS (2)
  1. RISPERDAL [Suspect]
     Active Substance: RISPERIDONE
     Route: 048
     Dates: end: 200908
  2. RISPERDAL [Suspect]
     Active Substance: RISPERIDONE
     Indication: PRODUCT USED FOR UNKNOWN INDICATION
     Route: 048
     Dates: start: 20051115, end: 20090615

REACTIONS (5)
  - Breast enlargement [Unknown]
  - Weight increased [Unknown]
  - Seizure [Unknown]
  - Breast discharge [Unknown]
  - Trismus [Unknown]

NARRATIVE: CASE EVENT DATE: 20090101
